FAERS Safety Report 16643018 (Version 1)
Quarter: 2019Q3

REPORT INFORMATION
  Report Type: Spontaneous
  Country: US (occurrence: US)
  Receive Date: 20190729
  Receipt Date: 20190729
  Transmission Date: 20191004
  Serious: No
  Sender: FDA-Public Use
  Company Number: US-JNJFOC-20190737220

PATIENT
  Sex: Female
  Weight: 104.87 kg

DRUGS (6)
  1. SIMPONI ARIA [Suspect]
     Active Substance: GOLIMUMAB
     Indication: PSORIATIC ARTHROPATHY
     Dosage: VIAL/50 MG/4 ML; LOADING DOSE
     Route: 042
     Dates: start: 20190719
  2. SIMPONI ARIA [Suspect]
     Active Substance: GOLIMUMAB
     Dosage: VIAL/50 MG/4 ML; LOADING DOSE
     Route: 042
     Dates: start: 20190719
  3. TYLENOL [Concomitant]
     Active Substance: ACETAMINOPHEN
     Route: 065
  4. SIMPONI ARIA [Suspect]
     Active Substance: GOLIMUMAB
     Dosage: VIAL/50 MG/4 ML
     Route: 042
     Dates: start: 20190719
  5. SOLU-MEDROL [Concomitant]
     Active Substance: METHYLPREDNISOLONE SODIUM SUCCINATE
     Indication: PREMEDICATION
  6. ZYRTEC [Concomitant]
     Active Substance: CETIRIZINE HYDROCHLORIDE
     Indication: PREMEDICATION

REACTIONS (1)
  - Headache [Not Recovered/Not Resolved]
